FAERS Safety Report 7926294-3 (Version None)
Quarter: 2011Q4

REPORT INFORMATION
  Report Type: 
  Country: None (occurrence: None)
  Receive Date: 20111118
  Receipt Date: 20111114
  Transmission Date: 20120403
  Serious: Yes (Hospitalization)
  Sender: FDA-Public Use
  Company Number: US-BIOGENIDEC-2011BI043312

PATIENT
  Age: 58 Year
  Sex: Female

DRUGS (2)
  1. ATRETOL [Concomitant]
  2. AVONEX [Suspect]
     Indication: MULTIPLE SCLEROSIS
     Route: 030
     Dates: start: 19991201

REACTIONS (3)
  - SOMNOLENCE [None]
  - FATIGUE [None]
  - OVERDOSE [None]
